FAERS Safety Report 12534875 (Version 1)
Quarter: 2016Q3

REPORT INFORMATION
  Report Type: Spontaneous
  Country: US (occurrence: US)
  Receive Date: 20160707
  Receipt Date: 20160707
  Transmission Date: 20161109
  Serious: No
  Sender: FDA-Public Use
  Company Number: US-TEVA-671750USA

PATIENT
  Sex: Female

DRUGS (9)
  1. COPAXONE [Suspect]
     Active Substance: GLATIRAMER ACETATE
     Indication: MULTIPLE SCLEROSIS
     Dosage: 40MG/ML
     Route: 058
     Dates: start: 201510
  2. VALACYCLOVIR [Concomitant]
     Active Substance: VALACYCLOVIR HYDROCHLORIDE
  3. VANOS [Concomitant]
     Active Substance: FLUOCINONIDE
  4. ZOVIRAX [Concomitant]
     Active Substance: ACYCLOVIR
  5. NITROFURANTOIN. [Concomitant]
     Active Substance: NITROFURANTOIN
  6. ORTHO FLEX [Concomitant]
  7. CEPHALEXIN. [Concomitant]
     Active Substance: CEPHALEXIN
  8. FINACEA [Concomitant]
     Active Substance: AZELAIC ACID
  9. PHENAZOPYRID [Concomitant]

REACTIONS (1)
  - Gallbladder disorder [Unknown]
